FAERS Safety Report 8556295-6 (Version None)
Quarter: 2012Q3

REPORT INFORMATION
  Report Type: 
  Country: None (occurrence: None)
  Receive Date: 20120801
  Receipt Date: 20120726
  Transmission Date: 20120928
  Serious: Yes (Other)
  Sender: FDA-Public Use
  Company Number: US-PFIZER INC-2012182069

PATIENT
  Sex: Female

DRUGS (2)
  1. NEURONTIN [Suspect]
     Indication: OSTEITIS DEFORMANS
     Dosage: 900 MG/DAY
  2. NEURONTIN [Suspect]
     Indication: FIBROMYALGIA
     Dosage: 200 MG

REACTIONS (4)
  - SUICIDE ATTEMPT [None]
  - OFF LABEL USE [None]
  - SOMNOLENCE [None]
  - DRUG INTOLERANCE [None]
